FAERS Safety Report 12440774 (Version 1)
Quarter: 2016Q2

REPORT INFORMATION
  Report Type: Spontaneous
  Country: US (occurrence: US)
  Receive Date: 20160606
  Receipt Date: 20160606
  Transmission Date: 20160815
  Serious: No
  Sender: FDA-Public Use
  Company Number: US-TEVA-660240ACC

PATIENT
  Age: 18 Year
  Sex: Female
  Weight: 59.02 kg

DRUGS (2)
  1. JUNEL FE 1-20 [Concomitant]
     Indication: CONTRACEPTION
  2. AFTERA [Suspect]
     Active Substance: LEVONORGESTREL
     Indication: POST COITAL CONTRACEPTION
     Dates: start: 20160507, end: 20160507

REACTIONS (3)
  - Menstruation delayed [Not Recovered/Not Resolved]
  - Vaginal discharge [Recovered/Resolved]
  - Vaginal haemorrhage [Recovered/Resolved]

NARRATIVE: CASE EVENT DATE: 20160508
